FAERS Safety Report 7037311-X (Version None)
Quarter: 2010Q4

REPORT INFORMATION
  Report Type: 
  Country: None (occurrence: None)
  Receive Date: 20101011
  Receipt Date: 20100928
  Transmission Date: 20110411
  Serious: Yes (Disabling, Other)
  Sender: FDA-Public Use
  Company Number: DE-ROCHE-731479

PATIENT
  Sex: Male

DRUGS (2)
  1. PEGASYS [Suspect]
     Indication: HEPATITIS C
     Route: 065
     Dates: start: 20090417, end: 20090527
  2. COPEGUS [Suspect]
     Indication: HEPATITIS C
     Route: 065
     Dates: start: 20090417, end: 20090527

REACTIONS (5)
  - BLINDNESS UNILATERAL [None]
  - BODY TEMPERATURE INCREASED [None]
  - FATIGUE [None]
  - HEADACHE [None]
  - OPTIC ISCHAEMIC NEUROPATHY [None]
